FAERS Safety Report 5926663-7 (Version None)
Quarter: 2008Q4

REPORT INFORMATION
  Report Type: 
  Country: None (occurrence: None)
  Receive Date: 20081022
  Receipt Date: 20081015
  Transmission Date: 20090506
  Serious: Yes (Other)
  Sender: FDA-Public Use
  Company Number: GB-ROCHE-591951

PATIENT
  Sex: Female
  Weight: 84.3 kg

DRUGS (4)
  1. ORLISTAT [Suspect]
     Indication: OBESITY
     Route: 048
     Dates: start: 20080507
  2. AMITRIPTYLINE HCL [Concomitant]
     Route: 048
  3. TRAMADOL HCL [Concomitant]
     Indication: SPINAL DISORDER
     Route: 048
  4. FLU INJECTION [Concomitant]

REACTIONS (8)
  - ASTHMA [None]
  - BRONCHITIS [None]
  - DIARRHOEA [None]
  - EAR DISORDER [None]
  - LOWER RESPIRATORY TRACT INFECTION [None]
  - PAIN [None]
  - URINARY TRACT INFECTION [None]
  - VIRAL INFECTION [None]
